FAERS Safety Report 8431307-9 (Version None)
Quarter: 2012Q2

REPORT INFORMATION
  Report Type: 
  Country: None (occurrence: None)
  Receive Date: 20120613
  Receipt Date: 20120608
  Transmission Date: 20120825
  Serious: Yes (Other)
  Sender: FDA-Public Use
  Company Number: US-BIOGENIDEC-2011BI031252

PATIENT
  Sex: Male

DRUGS (3)
  1. AVONEX [Suspect]
     Indication: MULTIPLE SCLEROSIS
     Route: 030
     Dates: start: 20101112
  2. PHENOBARBITAL TAB [Concomitant]
     Dates: start: 20040101
  3. DEPAKOTE [Concomitant]
     Dates: start: 20040101

REACTIONS (9)
  - BLOOD PRESSURE INCREASED [None]
  - PHYSIOTHERAPY [None]
  - CONVULSION [None]
  - MEMORY IMPAIRMENT [None]
  - MOBILITY DECREASED [None]
  - THROMBOSIS [None]
  - VISUAL IMPAIRMENT [None]
  - TREMOR [None]
  - ASTHENIA [None]
